FAERS Safety Report 6481875-1 (Version None)
Quarter: 2009Q4

REPORT INFORMATION
  Report Type: 
  Country: None (occurrence: None)
  Receive Date: 20091208
  Receipt Date: 20090529
  Transmission Date: 20100525
  Serious: No
  Sender: FDA-Public Use
  Company Number: US-AMGEN-KDL340752

PATIENT
  Sex: Female

DRUGS (12)
  1. ENBREL [Suspect]
     Indication: RHEUMATOID ARTHRITIS
     Route: 058
     Dates: start: 20090201, end: 20090401
  2. UNSPECIFIED PAIN MEDICATION [Concomitant]
  3. UNSPECIFIED ALLERGY MEDICATION [Concomitant]
  4. UNSPECIFIED ANTIBIOTIC [Concomitant]
  5. PREMPRO [Concomitant]
  6. UNSPECIFIED HORMONE REPLACEMENT THERAPY AGENT [Concomitant]
  7. TORADOL [Concomitant]
  8. HUMIRA [Concomitant]
  9. ALLEGRA [Concomitant]
  10. BACTROBAN [Concomitant]
  11. NAPROXEN [Concomitant]
  12. ACETAMINOPHEN AND HYDROCODONE BITARTRATE [Concomitant]

REACTIONS (23)
  - ARTHRALGIA [None]
  - BACK PAIN [None]
  - BURSITIS [None]
  - ERYTHEMA [None]
  - FATIGUE [None]
  - HYPERSENSITIVITY [None]
  - INJECTION SITE ERYTHEMA [None]
  - INJECTION SITE REACTION [None]
  - INJECTION SITE SWELLING [None]
  - LATEX ALLERGY [None]
  - MALAISE [None]
  - MUSCLE SPASMS [None]
  - MUSCULOSKELETAL PAIN [None]
  - MUSCULOSKELETAL STIFFNESS [None]
  - PAIN IN EXTREMITY [None]
  - POLYARTHRITIS [None]
  - SINUSITIS [None]
  - SYNOVITIS [None]
  - TENOSYNOVITIS [None]
  - UPPER RESPIRATORY TRACT INFECTION [None]
  - URINARY TRACT INFECTION [None]
  - VAGINAL INFECTION [None]
  - VULVITIS [None]
